FAERS Safety Report 9652807 (Version 1)
Quarter: 2013Q4

REPORT INFORMATION
  Report Type: Spontaneous
  Country: US (occurrence: US)
  Receive Date: 20131029
  Receipt Date: 20131029
  Transmission Date: 20140711
  Serious: No
  Sender: FDA-Public Use
  Company Number: US-BIOGENIDEC-2013BI077449

PATIENT
  Age: 55 Year
  Sex: Male

DRUGS (9)
  1. TECFIDERA [Suspect]
     Indication: MULTIPLE SCLEROSIS
     Route: 048
     Dates: start: 201305
  2. SOMA [Concomitant]
  3. FUROSEMIDE [Concomitant]
  4. LYRICA [Concomitant]
  5. CLONAZEPAM [Concomitant]
  6. DOXAZOSIN MESYLATE [Concomitant]
  7. SULFAMETHOXAZOLE-TMP DS [Concomitant]
  8. POTASSIUM CL ER [Concomitant]
  9. PROVIGIL [Concomitant]

REACTIONS (3)
  - Vomiting [Recovered/Resolved]
  - Diarrhoea [Recovered/Resolved]
  - Dehydration [Recovered/Resolved]
